FAERS Safety Report 9117955 (Version 2)
Quarter: 2014Q2

REPORT INFORMATION
  Report Type: Spontaneous
  Country: RS (occurrence: RS)
  Receive Date: 20130225
  Receipt Date: 20140617
  Transmission Date: 20141212
  Serious: Yes (Hospitalization)
  Sender: FDA-Public Use
  Company Number: PHHY2013RS016585

PATIENT
  Age: 63 Year
  Sex: Male

DRUGS (4)
  1. MAPROTILINE HYDROCHLORIDE [Suspect]
     Dosage: 125 MG, PER DAY
  2. HALOPERIDOL [Interacting]
     Dosage: 4 MG, PER DAY
  3. LITHIUM [Interacting]
     Dosage: 900 MG, PER DAY
  4. METFORMIN [Concomitant]
     Indication: DIABETES MELLITUS
     Dosage: 2000 MG, QD
     Route: 048

REACTIONS (13)
  - Renal failure acute [Recovered/Resolved]
  - Oliguria [Recovered/Resolved]
  - Fatigue [Recovered/Resolved]
  - Extrapyramidal disorder [Recovered/Resolved]
  - Somnolence [Recovered/Resolved]
  - Psychomotor skills impaired [Recovered/Resolved]
  - Confusional state [Recovered/Resolved]
  - Joint swelling [Recovered/Resolved]
  - Loss of consciousness [Recovered/Resolved]
  - Toxicity to various agents [Recovered/Resolved]
  - Antipsychotic drug level increased [Recovered/Resolved]
  - Hypokinesia [Recovered/Resolved]
  - Swelling face [Recovered/Resolved]
